FAERS Safety Report 15806009 (Version 1)
Quarter: 2019Q1

REPORT INFORMATION
  Report Type: Spontaneous
  Country: US (occurrence: US)
  Receive Date: 20190110
  Receipt Date: 20190110
  Transmission Date: 20190417
  Serious: Yes (Disabling)
  Sender: FDA-Public Use
  Company Number: US-TEVA-2019-US-995337

PATIENT

DRUGS (3)
  1. TAXOTERE [Suspect]
     Active Substance: DOCETAXEL
     Route: 065
     Dates: start: 201410, end: 201412
  2. DOCETAXEL INJECTION [Suspect]
     Active Substance: DOCETAXEL
     Dosage: CONCENTRATE
     Route: 065
     Dates: start: 201410, end: 201412
  3. DOCEFREZ [Suspect]
     Active Substance: DOCETAXEL ANHYDROUS
     Route: 065
     Dates: start: 201410, end: 201412

REACTIONS (1)
  - Alopecia [Not Recovered/Not Resolved]
